FAERS Safety Report 6674477-5 (Version None)
Quarter: 2010Q2

REPORT INFORMATION
  Report Type: 
  Country: None (occurrence: None)
  Receive Date: 20100409
  Receipt Date: 20100406
  Transmission Date: 20101027
  Serious: Yes (Life-Threatening)
  Sender: FDA-Public Use
  Company Number: PHHO2010CH05209

PATIENT
  Sex: Male

DRUGS (3)
  1. STI571/CGP57148B T35717+CAPS [Suspect]
     Indication: CHRONIC MYELOID LEUKAEMIA
     Dosage: 400 MG, QD
     Route: 048
     Dates: start: 20081108
  2. METOPROLOL SUCCINATE [Concomitant]
  3. MARCUMAR [Concomitant]

REACTIONS (2)
  - CIRCULATORY COLLAPSE [None]
  - VENTRICULAR FLUTTER [None]
